FAERS Safety Report 7508131-4 (Version None)
Quarter: 2011Q2

REPORT INFORMATION
  Report Type: 
  Country: None (occurrence: None)
  Receive Date: 20110527
  Receipt Date: 20110524
  Transmission Date: 20111010
  Serious: Yes (Life-Threatening)
  Sender: FDA-Public Use
  Company Number: JP-ELI_LILLY_AND_COMPANY-JP201105007051

PATIENT
  Age: 75 Year
  Sex: Male

DRUGS (6)
  1. ALIMTA [Suspect]
     Dosage: 500 MG/M2, UNK
     Route: 042
     Dates: start: 20110428, end: 20110428
  2. TRANSAMIN [Concomitant]
     Dosage: 3 DF, QD
     Route: 048
  3. OXYCONTIN [Concomitant]
     Indication: CANCER PAIN
     Dosage: 40 MG, QD
     Route: 048
  4. ADONA [Concomitant]
     Dosage: 3 DF, QD
     Route: 048
  5. OXYCODONE HYDROCHLORIDE [Concomitant]
     Indication: CANCER PAIN
     Dosage: UNK, PRN
     Route: 048
  6. ALIMTA [Suspect]
     Indication: NON-SMALL CELL LUNG CANCER
     Dosage: 500 MG/M2, UNK
     Route: 042
     Dates: start: 20110406, end: 20110406

REACTIONS (2)
  - ACUTE RESPIRATORY DISTRESS SYNDROME [None]
  - PYREXIA [None]
